FAERS Safety Report 9642759 (Version 1)
Quarter: 2013Q4

REPORT INFORMATION
  Report Type: Spontaneous
  Country: AU (occurrence: AU)
  Receive Date: 20131024
  Receipt Date: 20131024
  Transmission Date: 20140711
  Serious: Yes (Death, Other)
  Sender: FDA-Public Use
  Company Number: AU-AMGEN-AUSSP2013073249

PATIENT
  Age: 67 Year
  Sex: Female

DRUGS (7)
  1. FILGRASTIM [Suspect]
     Indication: HAEMATOPOIETIC STEM CELL MOBILISATION
     Dosage: UNK
     Route: 065
  2. BORTEZOMIB [Suspect]
     Indication: PLASMA CELL MYELOMA
     Dosage: 1.3 MG/M2, 21 DAY TREATMENT CYCLES
     Route: 065
  3. DOXORUBICIN HYDROCHLORIDE [Suspect]
     Indication: PLASMA CELL MYELOMA
     Dosage: 20 MG/M2, 21 DAY TREATMENT CYCLES
     Route: 065
  4. DEXAMETHASONE [Suspect]
     Indication: PLASMA CELL MYELOMA
     Dosage: 20 MG, QWK (21 DAY TREATMENT CYCLES)
     Route: 065
  5. CYCLOPHOSPHAMIDE [Suspect]
     Indication: HAEMATOPOIETIC STEM CELL MOBILISATION
     Dosage: 3 G/M2, UNK
     Route: 065
  6. THALIDOMIDE [Suspect]
     Indication: PRODUCT USED FOR UNKNOWN INDICATION
     Dosage: UNK
     Route: 065
  7. PREDNISOLONE [Concomitant]
     Dosage: UNK

REACTIONS (4)
  - Disease progression [Fatal]
  - Cytomegalovirus chorioretinitis [Unknown]
  - Febrile neutropenia [Unknown]
  - Neuropathy peripheral [Unknown]
